FAERS Safety Report 15887600 (Version 1)
Quarter: 2019Q1

REPORT INFORMATION
  Report Type: Spontaneous
  Country: DE (occurrence: DE)
  Receive Date: 20190130
  Receipt Date: 20190130
  Transmission Date: 20190417
  Serious: Yes (Hospitalization)
  Sender: FDA-Public Use
  Company Number: DE-ACCORD-104079

PATIENT
  Age: 74 Year
  Sex: Male

DRUGS (12)
  1. METAMIZOLE SODIUM [Concomitant]
     Active Substance: METAMIZOLE SODIUM
     Dosage: 20-20-20-0, TROPFEN
  2. CLEXANE [Concomitant]
     Active Substance: ENOXAPARIN SODIUM
     Dosage: 0.4 MG, 1-0-0-0
     Route: 058
  3. ETOPOSIDE. [Suspect]
     Active Substance: ETOPOSIDE
     Indication: PRODUCT USED FOR UNKNOWN INDICATION
     Dosage: NK MG, NK
  4. NEULASTA [Suspect]
     Active Substance: PEGFILGRASTIM
     Indication: PRODUCT USED FOR UNKNOWN INDICATION
     Dosage: NK MG, NK
  5. PAMIDRONATE DISODIUM/PAMIDRONIC ACID [Suspect]
     Active Substance: PAMIDRONATE DISODIUM
     Indication: PRODUCT USED FOR UNKNOWN INDICATION
     Dosage: 90 MG, ALLE 4 WOCHEN
  6. PANTOPRAZOLE [Concomitant]
     Active Substance: PANTOPRAZOLE
     Dosage: 40 MG, 0-1-0-0
  7. MACROGOL/MACROGOL STEARATE [Concomitant]
     Dosage: NK MG, 1-1-0-0
  8. FUROSEMIDE. [Concomitant]
     Active Substance: FUROSEMIDE
     Dosage: 20 MG, 1-0.5-0-0
  9. ALLOPURINOL. [Concomitant]
     Active Substance: ALLOPURINOL
     Dosage: 300 MG, 1-0-0-0
  10. CARVEDILOL/CARVEDILOL HYDROCHLODRIDE [Concomitant]
     Dosage: 25 MG, 1-0-0-1
  11. CARBOPLATIN. [Suspect]
     Active Substance: CARBOPLATIN
     Indication: PRODUCT USED FOR UNKNOWN INDICATION
     Dosage: NK MG, NK
  12. REKAWAN [Concomitant]
     Active Substance: POTASSIUM CHLORIDE
     Dosage: NK MG, 1-0-1-0

REACTIONS (3)
  - Nausea [Unknown]
  - Tachycardia [Unknown]
  - Diarrhoea [Unknown]
